FAERS Safety Report 18241922 (Version 3)
Quarter: 2022Q1

REPORT INFORMATION
  Report Type: Report from Study
  Country: CN (occurrence: CN)
  Receive Date: 20200908
  Receipt Date: 20220330
  Transmission Date: 20220423
  Serious: Yes (Death)
  Sender: FDA-Public Use
  Company Number: CN-PFIZER INC-2020344453

PATIENT
  Age: 25 Year
  Sex: Female
  Weight: 41 kg

DRUGS (12)
  1. TIGECYCLINE [Suspect]
     Active Substance: TIGECYCLINE
     Indication: Klebsiella infection
     Dosage: 100 MG, EVERY 12H
     Dates: start: 2019
  2. TIGECYCLINE [Suspect]
     Active Substance: TIGECYCLINE
     Indication: Sepsis
  3. CEFOPERAZONE SODIUM\SULBACTAM SODIUM [Suspect]
     Active Substance: CEFOPERAZONE SODIUM\SULBACTAM SODIUM
     Indication: Sepsis
     Dosage: 3 G, 2X/DAY (Q12H)
     Dates: start: 2019, end: 2019
  4. VANCOMYCIN [Suspect]
     Active Substance: VANCOMYCIN
     Indication: Sepsis
     Dosage: 1 G, 2X/DAY (Q12H)
     Dates: start: 2019
  5. LEVOFLOXACIN [Suspect]
     Active Substance: LEVOFLOXACIN
     Indication: Sepsis
     Dosage: 0.5 G, 1X/DAY(QD)
     Dates: start: 2019, end: 2019
  6. INDOMETHACIN [Suspect]
     Active Substance: INDOMETHACIN
     Indication: Sepsis
     Dosage: UNK
     Dates: start: 2019
  7. POLYMYXIN B [Suspect]
     Active Substance: POLYMYXIN B
     Indication: Klebsiella infection
     Dosage: UNK, 2X/DAY (0.5 MIU EVERY 12H)
     Dates: start: 2019
  8. POLYMYXIN B [Suspect]
     Active Substance: POLYMYXIN B
     Indication: Sepsis
  9. CILASTATIN SODIUM\IMIPENEM [Suspect]
     Active Substance: CILASTATIN SODIUM\IMIPENEM
     Indication: Sepsis
     Dosage: 1 G, 4X/DAY(Q6H)
     Dates: start: 2019
  10. CILASTATIN SODIUM\IMIPENEM [Suspect]
     Active Substance: CILASTATIN SODIUM\IMIPENEM
     Dosage: 1 G, 4X/DAY(Q6H)
     Dates: start: 2019
  11. FOSFOMYCIN SODIUM [Suspect]
     Active Substance: FOSFOMYCIN SODIUM
     Indication: Klebsiella infection
     Dosage: 6 G, EVERY 12H
     Dates: start: 2019
  12. FOSFOMYCIN SODIUM [Suspect]
     Active Substance: FOSFOMYCIN SODIUM
     Indication: Sepsis

REACTIONS (1)
  - Drug ineffective [Fatal]
